FAERS Safety Report 4551059-2 (Version None)
Quarter: 2005Q1

REPORT INFORMATION
  Report Type: 
  Country: None (occurrence: None)
  Receive Date: 20050113
  Receipt Date: 20041206
  Transmission Date: 20050727
  Serious: Yes (Hospitalization)
  Sender: FDA-Public Use
  Company Number: 200422030GDDC

PATIENT
  Age: 63 Year
  Sex: Male
  Weight: 86 kg

DRUGS (5)
  1. TAXOTERE [Suspect]
     Indication: LUNG NEOPLASM MALIGNANT
     Route: 042
     Dates: start: 20041123
  2. DEXASON [Concomitant]
     Indication: PROPHYLAXIS
     Route: 048
     Dates: start: 20041121, end: 20041125
  3. PLASIL [Concomitant]
     Indication: NAUSEA
     Route: 048
     Dates: start: 20041123, end: 20041128
  4. KYTRIL [Concomitant]
     Indication: NAUSEA
     Route: 048
     Dates: start: 20041123, end: 20041125
  5. RANITIDINE [Concomitant]
     Indication: PROPHYLAXIS
     Route: 048
     Dates: start: 20041123, end: 20041125

REACTIONS (3)
  - DEHYDRATION [None]
  - SYNCOPE [None]
  - TRAUMATIC BRAIN INJURY [None]
